FAERS Safety Report 18710431 (Version 2)
Quarter: 2022Q2

REPORT INFORMATION
  Report Type: Other
  Country: US (occurrence: US)
  Receive Date: 20210107
  Receipt Date: 20220414
  Transmission Date: 20220720
  Serious: Yes (Other)
  Sender: FDA-Public Use
  Company Number: US-GLENMARK PHARMACEUTICALS-2020GMK047980

PATIENT

DRUGS (3)
  1. RANITIDINE HYDROCHLORIDE [Suspect]
     Active Substance: RANITIDINE HYDROCHLORIDE
     Indication: Product used for unknown indication
     Dosage: 150 MILLIGRAM, BID
     Route: 065
  2. ZANTAC [Suspect]
     Active Substance: RANITIDINE HYDROCHLORIDE
     Indication: Product used for unknown indication
     Dosage: UNK, BID (MORNING AND NIGHT)
     Route: 065
  3. PEPCID AC [Concomitant]
     Active Substance: FAMOTIDINE
     Indication: Product used for unknown indication
     Dosage: UNK
     Route: 065

REACTIONS (11)
  - Gastric disorder [Recovered/Resolved]
  - Recalled product administered [Unknown]
  - Neoplasm malignant [Recovered/Resolved]
  - Oropharyngeal pain [Recovered/Resolved]
  - Yellow skin [Recovered/Resolved]
  - Thermal burn [Recovered/Resolved]
  - Ocular discomfort [Recovered/Resolved]
  - Constipation [Recovered/Resolved]
  - Therapeutic product effect variable [Unknown]
  - Dizziness [Recovered/Resolved]
  - Headache [Recovered/Resolved]
